FAERS Safety Report 6928905-8 (Version None)
Quarter: 2010Q3

REPORT INFORMATION
  Report Type: 
  Country: None (occurrence: None)
  Receive Date: 20100817
  Receipt Date: 20100803
  Transmission Date: 20110219
  Serious: Yes (Hospitalization)
  Sender: FDA-Public Use
  Company Number: US-MYLANLABS-2010S1014060

PATIENT
  Age: 52 Year
  Sex: Female

DRUGS (13)
  1. CLONIDINE [Suspect]
     Indication: HYPERTENSION
     Dosage: 0.2 MG THREE TIMES DAILY
     Route: 065
  2. CLONIDINE [Suspect]
     Dosage: 0.2 MG ONCE
     Route: 048
  3. CLONIDINE [Suspect]
     Dosage: 0.1 MG ONCE
     Route: 065
  4. METOPROLOL TARTRATE [Suspect]
     Indication: HYPERTENSION
     Dosage: 200 MG TWICE DAILY
     Route: 065
  5. METOPROLOL TARTRATE [Suspect]
     Dosage: 100 MG TWICE
     Route: 065
  6. METOPROLOL TARTRATE [Suspect]
     Dosage: 200 MG ONCE
     Route: 065
  7. DILTIAZEM HCL [Interacting]
     Indication: HYPERTENSION
     Dosage: 180 MG ONCE DAILY. RECEIVED THIS DOSE BEFORE ADMISSION AND ON DAY 2 OF ADMISSION
  8. LABETALOL HCL [Suspect]
     Indication: HYPERTENSION
     Dosage: 20 MG ONCE
     Route: 042
  9. NIFEDIPINE [Suspect]
     Indication: HYPERTENSION
     Dosage: ORAL NIFEDIPINE XL 60 MG
     Route: 048
  10. LOPINAVIR/RITONAVIR [Interacting]
     Indication: HIV INFECTION
     Dosage: TWO 200/50 MG TABLETS TWICE DAILY. RECEIVED THIS DOSE PRIOR TO ADMISSION AND ON DAY 1 OF ADMISSION
     Route: 048
  11. HYDRALAZINE [Concomitant]
     Indication: HYPERTENSION
     Dosage: 10 MG 3 TIMES DAILY. RECEIVED THIS DOSE PRIOR TO ADMISSION
     Route: 065
  12. HYDRALAZINE [Concomitant]
     Dosage: 10 MG THREE TIMES IV
     Route: 042
  13. HYDRALAZINE [Concomitant]
     Dosage: 10 MG ONCE
     Route: 065

REACTIONS (3)
  - DRUG INTERACTION [None]
  - ELECTROCARDIOGRAM P WAVE ABNORMAL [None]
  - HYPOTENSION [None]
